FAERS Safety Report 6894884-5 (Version None)
Quarter: 2010Q3

REPORT INFORMATION
  Report Type: 
  Country: None (occurrence: None)
  Receive Date: 20100730
  Receipt Date: 20100730
  Transmission Date: 20110219
  Serious: Yes (Other)
  Sender: FDA-Public Use
  Company Number: None

PATIENT
  Sex: Female
  Weight: 49.8957 kg

DRUGS (2)
  1. LYRICA [Suspect]
     Indication: PAIN
     Dosage: 50/100/150 MG NIGHTLY ORAL
     Route: 048
     Dates: start: 20090201, end: 20100707
  2. LYRICA [Suspect]
     Indication: SOMNOLENCE
     Dosage: 50/100/150 MG NIGHTLY ORAL
     Route: 048
     Dates: start: 20090201, end: 20100707

REACTIONS (3)
  - DRY MOUTH [None]
  - GINGIVAL BLEEDING [None]
  - ORAL PAIN [None]
